FAERS Safety Report 5809862-4 (Version None)
Quarter: 2008Q3

REPORT INFORMATION
  Report Type: 
  Country: None (occurrence: None)
  Receive Date: 20080715
  Receipt Date: 20080707
  Transmission Date: 20090109
  Serious: Yes (Death, Hospitalization)
  Sender: FDA-Public Use
  Company Number: JP-AMGEN-US270003

PATIENT
  Sex: Female

DRUGS (12)
  1. ENBREL [Suspect]
     Indication: RHEUMATOID ARTHRITIS
     Route: 058
     Dates: start: 20070816
  2. ENBREL [Suspect]
     Route: 058
     Dates: start: 20080228
  3. PREDONINE [Suspect]
     Indication: RHEUMATOID ARTHRITIS
     Route: 048
     Dates: start: 19970101
  4. RHEUMATREX [Suspect]
     Indication: RHEUMATOID ARTHRITIS
     Route: 048
     Dates: start: 19970101
  5. FOLIAMIN [Concomitant]
     Route: 048
     Dates: start: 19970101
  6. LOXONIN [Concomitant]
     Route: 048
     Dates: start: 19970101
  7. FOSAMAX [Concomitant]
     Route: 048
  8. BAYMYCARD [Concomitant]
     Route: 048
     Dates: start: 19970101
  9. TAKEPRON [Concomitant]
     Route: 048
     Dates: start: 19970101
  10. FRANDOL [Concomitant]
     Route: 061
  11. SELTOUCH [Concomitant]
     Dosage: UNKNOWN
     Route: 061
  12. MARZULENE S [Concomitant]
     Route: 048
     Dates: start: 19970101

REACTIONS (11)
  - ABSCESS LIMB [None]
  - ARTHRITIS BACTERIAL [None]
  - CARDIO-RESPIRATORY ARREST [None]
  - CONDITION AGGRAVATED [None]
  - HAEMORRHAGE SUBCUTANEOUS [None]
  - MYALGIA [None]
  - NASOPHARYNGITIS [None]
  - PYREXIA [None]
  - RHEUMATOID ARTHRITIS [None]
  - SEPTIC SHOCK [None]
  - STAPHYLOCOCCAL INFECTION [None]
